FAERS Safety Report 13693145 (Version 1)
Quarter: 2017Q2

REPORT INFORMATION
  Report Type: Spontaneous
  Country: US (occurrence: US)
  Receive Date: 20170626
  Receipt Date: 20170626
  Transmission Date: 20170830
  Serious: No
  Sender: FDA-Public Use
  Company Number: None

PATIENT
  Age: 81 Year
  Sex: Male

DRUGS (1)
  1. NEULASTA [Suspect]
     Active Substance: PEGFILGRASTIM
     Indication: MYELODYSPLASTIC SYNDROME
     Dosage: ONCE EVERY 28 DAYS
     Route: 058
     Dates: start: 20161207

REACTIONS (2)
  - Dizziness [None]
  - Abdominal distension [None]

NARRATIVE: CASE EVENT DATE: 20170623
